FAERS Safety Report 26150714 (Version 1)
Quarter: 2025Q4

REPORT INFORMATION
  Report Type: Spontaneous
  Country: US (occurrence: None)
  Receive Date: 20251211
  Receipt Date: 20251211
  Transmission Date: 20260118
  Serious: Yes (Other)
  Sender: FDA-CTU
  Company Number: None

PATIENT
  Age: 76 Year
  Sex: Female
  Weight: 70 kg

DRUGS (1)
  1. OPDIVO [Suspect]
     Active Substance: NIVOLUMAB
     Dosage: OTHER FREQUENCY : ONCE;
     Route: 042

REACTIONS (5)
  - Infusion related reaction [None]
  - Stridor [None]
  - Chest discomfort [None]
  - Wheezing [None]
  - Hypertension [None]

NARRATIVE: CASE EVENT DATE: 20251117
